FAERS Safety Report 4799775-1 (Version None)
Quarter: 2005Q4

REPORT INFORMATION
  Report Type: 
  Country: None (occurrence: None)
  Receive Date: 20051012
  Receipt Date: 20051012
  Transmission Date: 20060501
  Serious: Yes (Hospitalization)
  Sender: FDA-Public Use
  Company Number: None

PATIENT
  Sex: Male
  Weight: 85.2762 kg

DRUGS (7)
  1. DOXORUBICIN HCL [Suspect]
     Indication: NEOPLASM MALIGNANT
     Dosage: (THERAPY DATES: PRIOR TO ADMISSION)
  2. CISPLATIN [Suspect]
     Indication: NEOPLASM MALIGNANT
     Dosage: (THERAPY DATES: PRIOR TO ADMISSION)
  3. ETOPOSIDE [Suspect]
     Indication: NEOPLASM MALIGNANT
     Dosage: (THERAPY DATES: PRIOR TO ADMISSION)
  4. PREDNISONE [Suspect]
     Indication: NEOPLASM MALIGNANT
     Dosage: (THERAPY DATES: PRIOR TO ADMISSION)
  5. FLOMAX [Concomitant]
  6. COMPAZINE [Concomitant]
  7. ACYCLOVIR [Concomitant]

REACTIONS (1)
  - FEBRILE NEUTROPENIA [None]
